FAERS Safety Report 7402433-8 (Version None)
Quarter: 2011Q2

REPORT INFORMATION
  Report Type: 
  Country: None (occurrence: None)
  Receive Date: 20110408
  Receipt Date: 20110331
  Transmission Date: 20111010
  Serious: Yes (Hospitalization)
  Sender: FDA-Public Use
  Company Number: PHHY2011FR27592

PATIENT
  Sex: Female

DRUGS (1)
  1. PARLODEL [Suspect]
     Indication: LACTATION INHIBITION THERAPY
     Dosage: 2.5 MG, UNK
     Dates: start: 20110304, end: 20110322

REACTIONS (1)
  - RHABDOMYOLYSIS [None]
